FAERS Safety Report 9340000 (Version 1)
Quarter: 2013Q2

REPORT INFORMATION
  Report Type: Spontaneous
  Country: US (occurrence: US)
  Receive Date: 20130610
  Receipt Date: 20130610
  Transmission Date: 20140414
  Serious: Yes (Other)
  Sender: FDA-Public Use
  Company Number: US-ASTELLAS-2013US004391

PATIENT
  Sex: Male

DRUGS (4)
  1. XTANDI [Suspect]
     Indication: PROSTATOMEGALY
     Dosage: 160 MG, UID/QD
     Route: 048
     Dates: start: 20130116
  2. XTANDI [Suspect]
     Indication: COLORECTAL CANCER
  3. XTANDI [Suspect]
     Indication: SMALL INTESTINE CARCINOMA
  4. XTANDI [Suspect]
     Indication: GASTRIC CANCER

REACTIONS (3)
  - Drug ineffective for unapproved indication [Unknown]
  - Off label use [Unknown]
  - Malignant neoplasm progression [Unknown]
